FAERS Safety Report 20570402 (Version 1)
Quarter: 2022Q1

REPORT INFORMATION
  Report Type: Report from Study
  Country: US (occurrence: US)
  Receive Date: 20220309
  Receipt Date: 20220309
  Transmission Date: 20220424
  Serious: No
  Sender: FDA-Public Use
  Company Number: US-BIOVITRUM-2022US03335

PATIENT
  Age: 47 Year
  Sex: Male

DRUGS (1)
  1. KINERET [Suspect]
     Active Substance: ANAKINRA
     Indication: Polyarthritis
     Route: 058
     Dates: start: 201904

REACTIONS (7)
  - Asbestosis [Unknown]
  - Inflammation [Unknown]
  - Condition aggravated [Unknown]
  - Contusion [Unknown]
  - Injection site induration [Unknown]
  - Product dose omission issue [Unknown]
  - Off label use [Unknown]

NARRATIVE: CASE EVENT DATE: 20190401
